FAERS Safety Report 8250373-7 (Version None)
Quarter: 2012Q2

REPORT INFORMATION
  Report Type: 
  Country: None (occurrence: None)
  Receive Date: 20120402
  Receipt Date: 20120319
  Transmission Date: 20120825
  Serious: Yes (Hospitalization)
  Sender: FDA-Public Use
  Company Number: GB-ELI_LILLY_AND_COMPANY-GB201203005549

PATIENT
  Age: 71 Year
  Sex: Male
  Weight: 79.7 kg

DRUGS (9)
  1. GEMCITABINE HYDROCHLORIDE [Suspect]
     Indication: NON-HODGKIN'S LYMPHOMA
     Dosage: 1880 MG, UNKNOWN
     Dates: start: 20090325, end: 20090401
  2. CYCLOPHOSPHAMIDE [Concomitant]
     Indication: NON-HODGKIN'S LYMPHOMA
     Dosage: 1410 MG, UNKNOWN
     Route: 042
     Dates: start: 20090325, end: 20090325
  3. RITUXIMAB [Concomitant]
     Indication: NON-HODGKIN'S LYMPHOMA
     Dosage: 705 MG, UNKNOWN
     Route: 042
     Dates: start: 20090325, end: 20090325
  4. METOCLOPRAMIDE [Concomitant]
     Dosage: 10 MG, QD
     Route: 048
     Dates: start: 20090325, end: 20090404
  5. NEULASTA [Concomitant]
     Indication: NON-HODGKIN'S LYMPHOMA
     Dosage: 6 MG, UNKNOWN
     Route: 058
     Dates: start: 20090325, end: 20090402
  6. VINCRISTINE [Concomitant]
     Indication: NON-HODGKIN'S LYMPHOMA
     Dosage: 2 MG, UNKNOWN
     Route: 042
     Dates: start: 20090325, end: 20090325
  7. COTRIM [Concomitant]
     Indication: PROPHYLAXIS
     Dosage: 960 MG, UNKNOWN
     Dates: start: 20090325
  8. PREDNISONE TAB [Concomitant]
     Indication: NON-HODGKIN'S LYMPHOMA
     Dosage: 100 MG, UNKNOWN
     Route: 048
     Dates: start: 20090325, end: 20090329
  9. TRAMADOL HCL [Concomitant]
     Indication: ANALGESIC THERAPY
     Dosage: 100 MG, UNKNOWN
     Dates: start: 20090325

REACTIONS (6)
  - MYOCARDIAL INFARCTION [None]
  - OFF LABEL USE [None]
  - SEPSIS [None]
  - HAEMOGLOBIN DECREASED [None]
  - PLATELET COUNT DECREASED [None]
  - CORONARY ARTERY OCCLUSION [None]
